FAERS Safety Report 18373672 (Version 2)
Quarter: 2020Q4

REPORT INFORMATION
  Report Type: Spontaneous
  Country: FI (occurrence: FI)
  Receive Date: 20201012
  Receipt Date: 20201106
  Transmission Date: 20210114
  Serious: Yes (Other)
  Sender: FDA-Public Use
  Company Number: FI-JNJFOC-20201013989

PATIENT

DRUGS (2)
  1. XARELTO [Suspect]
     Active Substance: RIVAROXABAN
     Indication: DEEP VEIN THROMBOSIS
     Dosage: 20 MG
     Route: 048
     Dates: start: 202009
  2. CHONDROITIN SULFATE SODIUM [Interacting]
     Active Substance: CHONDROITIN SULFATE (CHICKEN)
     Indication: OSTEOARTHRITIS
     Route: 065

REACTIONS (2)
  - Haemoglobin decreased [Unknown]
  - Drug interaction [Unknown]
